FAERS Safety Report 12153262 (Version 1)
Quarter: 2016Q1

REPORT INFORMATION
  Report Type: Spontaneous
  Country: GB (occurrence: GB)
  Receive Date: 20160306
  Receipt Date: 20160306
  Transmission Date: 20160526
  Serious: Yes (Other)
  Sender: FDA-Public Use
  Company Number: GB-AUROBINDO-AUR-APL-2016-02050

PATIENT
  Age: 30 Year
  Sex: Female
  Weight: 88.9 kg

DRUGS (1)
  1. SERTRALINE [Suspect]
     Active Substance: SERTRALINE HYDROCHLORIDE
     Indication: DEPRESSION
     Dosage: 50MG RISING TO 150MG.
     Route: 048
     Dates: start: 20120501, end: 20150701

REACTIONS (7)
  - Hyperhidrosis [Recovered/Resolved]
  - Loss of libido [Recovered/Resolved with Sequelae]
  - Vertigo [Recovered/Resolved]
  - Paraesthesia [Recovered/Resolved]
  - Decreased interest [Recovered/Resolved with Sequelae]
  - Insomnia [Recovered/Resolved]
  - Bradyphrenia [Recovered/Resolved]

NARRATIVE: CASE EVENT DATE: 20120501
